FAERS Safety Report 7122990-9 (Version None)
Quarter: 2010Q4

REPORT INFORMATION
  Report Type: 
  Country: None (occurrence: None)
  Receive Date: 20101124
  Receipt Date: 20101118
  Transmission Date: 20110411
  Serious: Yes (Hospitalization, Other)
  Sender: FDA-Public Use
  Company Number: JP-PFIZER INC-2010134824

PATIENT
  Age: 81 Year
  Sex: Female
  Weight: 58 kg

DRUGS (12)
  1. LYRICA [Suspect]
     Indication: POST HERPETIC NEURALGIA
     Dosage: 75 MG, 1X/DAY IN EVENING
     Route: 048
     Dates: start: 20100709, end: 20100715
  2. LYRICA [Suspect]
     Dosage: 75 MG, 2X/DAY
     Route: 048
     Dates: start: 20100716, end: 20100924
  3. MYSLEE [Concomitant]
     Dosage: 10 MG, 1X/DAY
     Route: 048
     Dates: start: 20091113
  4. TOFRANIL [Concomitant]
     Dosage: 10 MG, 1X/DAY
     Route: 048
     Dates: start: 20091225
  5. GABAPENTIN [Concomitant]
     Dosage: 200 MG, 2X/DAY
     Route: 048
     Dates: start: 20100605, end: 20100716
  6. CODEINE PHOSPHATE [Concomitant]
     Dosage: UNK
     Route: 048
     Dates: start: 20090821
  7. RIMATIL [Concomitant]
     Dosage: 100 MG, 2X/DAY
     Route: 048
     Dates: start: 20061024
  8. MAGNESIUM OXIDE [Concomitant]
     Dosage: 330 MG, AS NEEDED
     Route: 048
     Dates: start: 20080404
  9. GASMOTIN [Concomitant]
     Dosage: 5 MG, 2X/DAY
     Route: 048
     Dates: start: 20080404
  10. OMEPRAL [Concomitant]
     Dosage: 20 MG, 1X/DAY
     Route: 048
     Dates: start: 20080404
  11. VALSARTAN [Concomitant]
     Dosage: 80 MG, 2X/DAY
     Route: 048
  12. ATELEC [Concomitant]
     Dosage: 10 MG, 2X/DAY
     Route: 048

REACTIONS (2)
  - PLATELET COUNT DECREASED [None]
  - PNEUMONIA [None]
